FAERS Safety Report 8884518 (Version 2)
Quarter: 2012Q4

REPORT INFORMATION
  Report Type: 
  Country: RU (occurrence: RU)
  Receive Date: 20121102
  Receipt Date: 20121105
  Transmission Date: 20130627
  Serious: Yes (Hospitalization)
  Sender: FDA-Public Use
  Company Number: PHHY2012RU097795

PATIENT
  Age: 55 Year
  Sex: Male

DRUGS (1)
  1. AFINITOR [Suspect]
     Indication: RENAL CELL CARCINOMA
     Dosage: 10 mg, daily
     Dates: start: 201203

REACTIONS (7)
  - Peritonsillar abscess [Recovering/Resolving]
  - Localised oedema [Recovering/Resolving]
  - Odynophagia [Not Recovered/Not Resolved]
  - Lip oedema [Recovering/Resolving]
  - Tongue oedema [Recovering/Resolving]
  - Oedema mucosal [Recovering/Resolving]
  - Body temperature increased [Recovering/Resolving]
